FAERS Safety Report 13598712 (Version 3)
Quarter: 2017Q3

REPORT INFORMATION
  Report Type: Spontaneous
  Country: AU (occurrence: AU)
  Receive Date: 20170531
  Receipt Date: 20170705
  Transmission Date: 20171127
  Serious: Yes (Life-Threatening, Hospitalization, Other)
  Sender: FDA-Public Use
  Company Number: AU-PFIZER INC-2017208140

PATIENT
  Age: 37 Year
  Sex: Male
  Weight: 93.5 kg

DRUGS (10)
  1. AMISULPRIDE [Suspect]
     Active Substance: AMISULPRIDE
     Dosage: 18 DF OF 200 MG, UNK
     Route: 048
     Dates: start: 20170508, end: 20170508
  2. LORAZEPAM. [Suspect]
     Active Substance: LORAZEPAM
     Indication: ANXIETY
     Dosage: 1 MG, UNK
     Route: 048
  3. FLUVOXAMINE [Suspect]
     Active Substance: FLUVOXAMINE
     Dosage: UNK
  4. METHAMPHETAMINE [Concomitant]
     Active Substance: METHAMPHETAMINE
     Dosage: UNK
  5. CLOPINE [Suspect]
     Active Substance: CLOZAPINE
     Indication: SCHIZOPHRENIA
     Dosage: 300 MG, 1X/DAY (NOCTE)
     Route: 048
     Dates: start: 20050610, end: 20170510
  6. LORAZEPAM. [Suspect]
     Active Substance: LORAZEPAM
     Dosage: 18 DF OF 1 MG
     Route: 048
     Dates: start: 20170508, end: 20170508
  7. DESVENLAFAXINE SUCCINATE MONOHYDRATE [Suspect]
     Active Substance: DESVENLAFAXINE SUCCINATE
     Dosage: UNK
  8. AMISULPRIDE [Suspect]
     Active Substance: AMISULPRIDE
     Indication: SCHIZOPHRENIA
     Dosage: 200 MG, UNK
     Route: 048
  9. CLOZAPINE. [Suspect]
     Active Substance: CLOZAPINE
     Indication: SCHIZOPHRENIA
     Dosage: UNK
     Dates: start: 20000418
  10. CLOPINE [Suspect]
     Active Substance: CLOZAPINE
     Dosage: 18 TABLETS OF 300 MG, UNK
     Route: 048
     Dates: start: 20170508, end: 20170508

REACTIONS (3)
  - Suicide attempt [Unknown]
  - Intentional overdose [Recovered/Resolved]
  - Coma scale abnormal [Unknown]

NARRATIVE: CASE EVENT DATE: 20170508
